FAERS Safety Report 22198303 (Version 1)
Quarter: 2023Q2

REPORT INFORMATION
  Report Type: Spontaneous
  Country: US (occurrence: None)
  Receive Date: 20230411
  Receipt Date: 20230411
  Transmission Date: 20230722
  Serious: No
  Sender: FDA-Public Use
  Company Number: None

PATIENT
  Sex: Male

DRUGS (7)
  1. VIGABATRIN [Suspect]
     Active Substance: VIGABATRIN
     Indication: Epilepsy
     Dosage: FREQUENCY : TWICE A DAY;?
     Route: 048
  2. KEPPRA [Concomitant]
     Active Substance: LEVETIRACETAM
  3. PHENOBARBITAL [Concomitant]
     Active Substance: PHENOBARBITAL
  4. VIMPAT [Concomitant]
     Active Substance: LACOSAMIDE
  5. ALBUTEROL SULFATE [Concomitant]
     Active Substance: ALBUTEROL SULFATE
  6. CLONAZEPAM [Concomitant]
     Active Substance: CLONAZEPAM
  7. MCT OIL [Concomitant]

REACTIONS (1)
  - Upper respiratory tract infection [None]
